FAERS Safety Report 8092326-8 (Version None)
Quarter: 2012Q1

REPORT INFORMATION
  Report Type: 
  Country: None (occurrence: None)
  Receive Date: 20120128
  Receipt Date: 20110823
  Transmission Date: 20120608
  Serious: No
  Sender: FDA-Public Use
  Company Number: US-ABBOTT-11P-163-0848899-00

PATIENT
  Age: 50 Year
  Sex: Female

DRUGS (4)
  1. VICODIN [Concomitant]
     Indication: PAIN
     Dosage: 5/500, PRN
  2. PREMPRO [Concomitant]
     Indication: MENOPAUSAL SYMPTOMS
     Dosage: SYMPTOMS FOR YEARS
  3. PLAQUENIL [Concomitant]
     Indication: PRODUCT USED FOR UNKNOWN INDICATION
     Dosage: FOR YEARS, BID
  4. HUMIRA [Suspect]
     Indication: RHEUMATOID ARTHRITIS
     Dates: start: 20081001

REACTIONS (3)
  - DRUG EFFECT DECREASED [None]
  - PAIN [None]
  - INCORRECT STORAGE OF DRUG [None]
